FAERS Safety Report 4297400-X (Version None)
Quarter: 2004Q1

REPORT INFORMATION
  Report Type: 
  Country: None (occurrence: None)
  Receive Date: 20040217
  Receipt Date: 20040217
  Transmission Date: 20041129
  Serious: Yes (Hospitalization)
  Sender: FDA-Public Use
  Company Number: None

PATIENT
  Sex: Female
  Weight: 60.3284 kg

DRUGS (9)
  1. DEMEROL [Suspect]
     Indication: PAIN
     Dosage: 100 MG IM Q3 H PRN
     Route: 030
     Dates: start: 20030831
  2. PROTONIX [Concomitant]
  3. NORVASC [Concomitant]
  4. REMERON [Concomitant]
  5. LEXAPRO [Concomitant]
  6. LANTUS [Concomitant]
  7. INSULIN [Concomitant]
  8. HUMULIN R [Concomitant]
  9. LAMICTAL [Concomitant]

REACTIONS (2)
  - COMA [None]
  - GRAND MAL CONVULSION [None]
